FAERS Safety Report 20361639 (Version 4)
Quarter: 2023Q1

REPORT INFORMATION
  Report Type: Report from Study
  Country: DE (occurrence: DE)
  Receive Date: 20220121
  Receipt Date: 20230307
  Transmission Date: 20230417
  Serious: Yes (Hospitalization, Disabling, Other)
  Sender: FDA-Public Use
  Company Number: DE-NOVARTISPH-NVSC2022DE010251

PATIENT
  Sex: Male
  Weight: 78 kg

DRUGS (1)
  1. MAYZENT [Suspect]
     Active Substance: SIPONIMOD
     Indication: Secondary progressive multiple sclerosis
     Dosage: 1 MG, QD
     Route: 048
     Dates: start: 20200707

REACTIONS (7)
  - Cerebral infarction [Recovered/Resolved with Sequelae]
  - Hemiparesis [Unknown]
  - Headache [Recovered/Resolved]
  - Lymphopenia [Not Recovered/Not Resolved]
  - Dizziness [Recovered/Resolved]
  - Dysarthria [Unknown]
  - Intervertebral disc protrusion [Recovering/Resolving]

NARRATIVE: CASE EVENT DATE: 20200707
